FAERS Safety Report 24306555 (Version 1)
Quarter: 2024Q3

REPORT INFORMATION
  Report Type: Spontaneous
  Country: US (occurrence: None)
  Receive Date: 20240911
  Receipt Date: 20240911
  Transmission Date: 20241017
  Serious: No
  Sender: Alvotech
  Company Number: US-ALVOTECHPMS-2024-ALVOTECHPMS-002180

PATIENT
  Age: 12 Year
  Sex: Female

DRUGS (1)
  1. ADALIMUMAB-RYVK [Suspect]
     Active Substance: ADALIMUMAB-RYVK
     Indication: Juvenile idiopathic arthritis
     Route: 058

REACTIONS (2)
  - Injection site urticaria [Unknown]
  - Injection site pain [Unknown]
